FAERS Safety Report 6439076-9 (Version None)
Quarter: 2009Q4

REPORT INFORMATION
  Report Type: 
  Country: None (occurrence: None)
  Receive Date: 20091113
  Receipt Date: 20091104
  Transmission Date: 20100525
  Serious: Yes (Other)
  Sender: FDA-Public Use
  Company Number: US-ASTRAZENECA-2009SE24623

PATIENT
  Age: 53 Year
  Sex: Female

DRUGS (3)
  1. SEROQUEL XR [Suspect]
     Route: 048
  2. PROZAC [Concomitant]
  3. REGLAN [Concomitant]

REACTIONS (3)
  - CRYING [None]
  - HOMICIDAL IDEATION [None]
  - TREMOR [None]
